FAERS Safety Report 6945957-X (Version None)
Quarter: 2010Q3

REPORT INFORMATION
  Report Type: 
  Country: None (occurrence: None)
  Receive Date: 20100827
  Receipt Date: 20100819
  Transmission Date: 20110219
  Serious: Yes (Life-Threatening, Other)
  Sender: FDA-Public Use
  Company Number: US-PURDUE-USA-2010-0045767

PATIENT
  Sex: Male

DRUGS (1)
  1. OXYCONTIN [Suspect]
     Indication: PAIN

REACTIONS (9)
  - DRUG WITHDRAWAL SYNDROME [None]
  - EYE SWELLING [None]
  - FOREIGN BODY [None]
  - HYPERSENSITIVITY [None]
  - HYPERTENSION [None]
  - MEDICATION RESIDUE [None]
  - SWELLING FACE [None]
  - URTICARIA [None]
  - VOMITING [None]
